FAERS Safety Report 6829373-7 (Version None)
Quarter: 2010Q3

REPORT INFORMATION
  Report Type: 
  Country: None (occurrence: None)
  Receive Date: 20100709
  Receipt Date: 20070305
  Transmission Date: 20110219
  Serious: No
  Sender: FDA-Public Use
  Company Number: US-PFIZER INC-2007016144

PATIENT
  Sex: Female
  Weight: 63.5 kg

DRUGS (5)
  1. CHANTIX [Suspect]
     Indication: SMOKING CESSATION THERAPY
     Dates: start: 20070219
  2. ANALGESICS [Concomitant]
  3. OXYGEN [Concomitant]
  4. ALL OTHER THERAPEUTIC PRODUCTS [Concomitant]
     Route: 055
  5. ALL OTHER THERAPEUTIC PRODUCTS [Concomitant]

REACTIONS (4)
  - ABNORMAL DREAMS [None]
  - DYSGEUSIA [None]
  - INSOMNIA [None]
  - NAUSEA [None]
